FAERS Safety Report 18038647 (Version 1)
Quarter: 2020Q3

REPORT INFORMATION
  Report Type: Spontaneous
  Country: US (occurrence: US)
  Receive Date: 20200717
  Receipt Date: 20200717
  Transmission Date: 20201103
  Serious: No
  Sender: FDA-Public Use
  Company Number: US-PFIZER INC-2019403312

PATIENT
  Age: 61 Year
  Sex: Female

DRUGS (3)
  1. LYRICA CR [Suspect]
     Active Substance: PREGABALIN
     Indication: RADICULOPATHY
  2. LYRICA CR [Suspect]
     Active Substance: PREGABALIN
     Indication: ARTHRALGIA
     Dosage: 165 MG, DAILY(1 TABLETS ORAL EVERY DAY, PRN (AS NEEDED))
     Route: 048
  3. LYRICA CR [Suspect]
     Active Substance: PREGABALIN
     Indication: PAIN
     Dosage: 330 MG, DAILY
     Route: 048

REACTIONS (2)
  - Weight increased [Unknown]
  - Fatigue [Unknown]
